FAERS Safety Report 6197656-2 (Version None)
Quarter: 2009Q2

REPORT INFORMATION
  Report Type: 
  Country: None (occurrence: None)
  Receive Date: 20090521
  Receipt Date: 20090519
  Transmission Date: 20091009
  Serious: Yes (Death)
  Sender: FDA-Public Use
  Company Number: US-BRISTOL-MYERS SQUIBB COMPANY-14629893

PATIENT
  Age: 87 Year
  Sex: Male
  Weight: 47 kg

DRUGS (11)
  1. ABILIFY [Suspect]
     Dates: start: 20081027
  2. NAMENDA [Concomitant]
  3. REMERON [Concomitant]
  4. TYLENOL [Concomitant]
  5. CALCIUM [Concomitant]
  6. ASPIRIN [Concomitant]
  7. PREVACID [Concomitant]
  8. LEVOTHYROXINE SODIUM [Concomitant]
  9. NUTRITIONAL SUPPLEMENT [Concomitant]
  10. VITAMIN B-12 [Concomitant]
     Dosage: FORM= INJ
  11. COUMADIN [Concomitant]

REACTIONS (2)
  - MYOCARDIAL INFARCTION [None]
  - WEIGHT DECREASED [None]
